FAERS Safety Report 10232658 (Version 1)
Quarter: 2014Q2

REPORT INFORMATION
  Report Type: Spontaneous
  Country: JP (occurrence: JP)
  Receive Date: 20140612
  Receipt Date: 20140612
  Transmission Date: 20141212
  Serious: Yes (Hospitalization, Other)
  Sender: FDA-Public Use
  Company Number: JP-009507513-1406JPN005409

PATIENT
  Age: 53 Year
  Sex: Female

DRUGS (3)
  1. MIRTAZAPINE [Suspect]
     Indication: DEPRESSION
     Route: 048
  2. OLANZAPINE [Suspect]
     Indication: DEPRESSION
     Route: 048
  3. QUETIAPINE FUMARATE [Suspect]
     Indication: DEPRESSION

REACTIONS (2)
  - Renal failure acute [Unknown]
  - Postrenal failure [Unknown]
